FAERS Safety Report 19430120 (Version 1)
Quarter: 2021Q2

REPORT INFORMATION
  Report Type: Other
  Country: US (occurrence: US)
  Receive Date: 20210617
  Receipt Date: 20210617
  Transmission Date: 20210717
  Serious: Yes (Death)
  Sender: FDA-Public Use
  Company Number: US-ROCHE-2851127

PATIENT
  Sex: Male

DRUGS (2)
  1. XELODA [Suspect]
     Active Substance: CAPECITABINE
     Indication: COLORECTAL CANCER METASTATIC
     Dosage: TAKE 2000 MG (4 TABLETS) IN AM AND 1500 MG (3 TABLETS) IN THE PM X 14 DAYS, REPEAT CYCLES EVERY 21 D
     Route: 048
     Dates: start: 20210521
  2. XELODA [Suspect]
     Active Substance: CAPECITABINE
     Indication: COLON CANCER

REACTIONS (1)
  - Death [Fatal]
